FAERS Safety Report 14908535 (Version 1)
Quarter: 2018Q2

REPORT INFORMATION
  Report Type: Spontaneous
  Country: US (occurrence: US)
  Receive Date: 20180430
  Receipt Date: 20180430
  Transmission Date: 20180711
  Serious: Yes (Death)
  Sender: FDA-Public Use
  Company Number: None

PATIENT
  Age: 70 Year
  Sex: Male
  Weight: 67.5 kg

DRUGS (1)
  1. KEYTRUDA [Suspect]
     Active Substance: PEMBROLIZUMAB
     Indication: METASTATIC SQUAMOUS CELL CARCINOMA
     Dates: start: 20170606, end: 20170926

REACTIONS (9)
  - Aspartate aminotransferase increased [None]
  - Ocular icterus [None]
  - Blood alkaline phosphatase increased [None]
  - Blood bilirubin increased [None]
  - Fatigue [None]
  - Alanine aminotransferase increased [None]
  - Toxicity to various agents [None]
  - Mental status changes [None]
  - Confusional state [None]

NARRATIVE: CASE EVENT DATE: 20171010
